FAERS Safety Report 8543550-9 (Version None)
Quarter: 2012Q3

REPORT INFORMATION
  Report Type: 
  Country: None (occurrence: None)
  Receive Date: 20120727
  Receipt Date: 20120718
  Transmission Date: 20120928
  Serious: Yes (Hospitalization)
  Sender: FDA-Public Use
  Company Number: IT-CELGENEUS-083-21880-12072017

PATIENT

DRUGS (2)
  1. REVLIMID [Suspect]
     Indication: MULTIPLE MYELOMA
     Dosage: 25 MILLIGRAM
     Route: 048
     Dates: start: 20120515, end: 20120531
  2. DEXAMETHASONE [Concomitant]
     Dosage: 4.2857 MILLIGRAM
     Route: 065

REACTIONS (1)
  - DIVERTICULAR PERFORATION [None]
